FAERS Safety Report 17533609 (Version 1)
Quarter: 2020Q1

REPORT INFORMATION
  Report Type: Spontaneous
  Country: US (occurrence: US)
  Receive Date: 20200312
  Receipt Date: 20200312
  Transmission Date: 20200409
  Serious: Yes (Hospitalization)
  Sender: FDA-Public Use
  Company Number: US-PFIZER INC-2019385504

PATIENT
  Age: 86 Year
  Sex: Male
  Weight: 87.52 kg

DRUGS (2)
  1. BUMETANIDE. [Concomitant]
     Active Substance: BUMETANIDE
     Indication: FLUID RETENTION
     Dosage: 2 MG, UNK
  2. VYNDAQEL [Suspect]
     Active Substance: TAFAMIDIS MEGLUMINE
     Indication: CARDIAC AMYLOIDOSIS
     Dosage: 80 MG, 1X/DAY (FOUR A DAY, IN THE MORNING WHEN WOKE UP)
     Dates: start: 2019

REACTIONS (1)
  - Pneumonia [Recovering/Resolving]
